FAERS Safety Report 18864428 (Version 1)
Quarter: 2021Q1

REPORT INFORMATION
  Report Type: Spontaneous
  Country: US (occurrence: US)
  Receive Date: 20210208
  Receipt Date: 20210208
  Transmission Date: 20210420
  Serious: Yes (Other)
  Sender: FDA-Public Use
  Company Number: US-PFIZER INC-2021123288

PATIENT
  Age: 58 Year
  Sex: Male
  Weight: 72.57 kg

DRUGS (3)
  1. VIAGRA [Suspect]
     Active Substance: SILDENAFIL CITRATE
     Indication: ERECTILE DYSFUNCTION
     Dosage: UNK, PRIOR TO SEX
     Route: 048
  2. L?ARGININE [ARGININE] [Suspect]
     Active Substance: ARGININE
     Indication: CEREBROVASCULAR ACCIDENT PROPHYLAXIS
     Dosage: UNK UNK, 2X/DAY
  3. L?ARGININE [ARGININE] [Suspect]
     Active Substance: ARGININE
     Indication: CARDIOVASCULAR DISORDER

REACTIONS (2)
  - Blood urine present [Recovering/Resolving]
  - Contraindicated product administered [Unknown]
